FAERS Safety Report 19826485 (Version 1)
Quarter: 2021Q3

REPORT INFORMATION
  Report Type: Spontaneous
  Country: CN (occurrence: CN)
  Receive Date: 20210914
  Receipt Date: 20210914
  Transmission Date: 20211014
  Serious: Yes (Life-Threatening, Other)
  Sender: FDA-Public Use
  Company Number: CN-SUN PHARMACEUTICAL INDUSTRIES LTD-2021R1-311115

PATIENT
  Age: 43 Year
  Sex: Female

DRUGS (2)
  1. PREDNISONE. [Suspect]
     Active Substance: PREDNISONE
     Indication: IMMUNE-MEDIATED MYOSITIS
     Dosage: 10 MILLIGRAM, DAILY
     Route: 048
  2. METHOTREXATE. [Suspect]
     Active Substance: METHOTREXATE
     Indication: IMMUNE-MEDIATED MYOSITIS
     Dosage: 10 MILLIGRAM, WEEKLY
     Route: 048

REACTIONS (4)
  - Disease progression [Unknown]
  - Chest discomfort [Unknown]
  - Dyspnoea [Unknown]
  - Palpitations [Unknown]
